FAERS Safety Report 4700060-4 (Version None)
Quarter: 2005Q2

REPORT INFORMATION
  Report Type: 
  Country: None (occurrence: None)
  Receive Date: 20050627
  Receipt Date: 20050509
  Transmission Date: 20051028
  Serious: Yes (Other)
  Sender: FDA-Public Use
  Company Number: GB-GLAXOSMITHKLINE-B0380329A

PATIENT
  Sex: Female

DRUGS (1)
  1. VENTOLIN [Suspect]
     Indication: ASTHMA
     Route: 055

REACTIONS (3)
  - HEART INJURY [None]
  - NODULE [None]
  - PULMONARY OEDEMA [None]
